FAERS Safety Report 7590479-9 (Version None)
Quarter: 2011Q3

REPORT INFORMATION
  Report Type: 
  Country: None (occurrence: None)
  Receive Date: 20110705
  Receipt Date: 20110622
  Transmission Date: 20111222
  Serious: Yes (Hospitalization, Other)
  Sender: FDA-Public Use
  Company Number: CA-BAYER-2011-054070

PATIENT
  Age: 41 Year
  Sex: Female

DRUGS (14)
  1. HYDROMORPHONE HCL [Concomitant]
  2. KETOROLAC TROMETHAMINE [Concomitant]
  3. CELEBREX [Concomitant]
     Route: 048
  4. AVELOX [Suspect]
     Dosage: 400 MG, QD
  5. ACETAMINOPHEN [Concomitant]
  6. FENTANYL [Concomitant]
  7. ONDANSETRON [Concomitant]
  8. METOCLOPRAMIDE [Concomitant]
  9. MORPHINE SULFATE [Concomitant]
  10. LORAZEPAM [Concomitant]
  11. MEPERIDINE HCL [Concomitant]
  12. DOCUSATE SODIUM [Concomitant]
     Route: 048
  13. FAMOTIDINE [Concomitant]
     Route: 042
  14. HEPARIN SODIUM [Concomitant]
     Route: 058

REACTIONS (5)
  - VISION BLURRED [None]
  - EYELID PTOSIS [None]
  - HYPOAESTHESIA [None]
  - PUPILS UNEQUAL [None]
  - PARAESTHESIA [None]
